FAERS Safety Report 20024049 (Version 1)
Quarter: 2021Q4

REPORT INFORMATION
  Report Type: Spontaneous
  Country: DE (occurrence: DE)
  Receive Date: 20211102
  Receipt Date: 20211102
  Transmission Date: 20220303
  Serious: Yes (Hospitalization)
  Sender: FDA-Public Use
  Company Number: DE-ADRED-06881-01

PATIENT
  Age: 68 Year
  Sex: Female

DRUGS (2)
  1. CEFPODOXIME [Suspect]
     Active Substance: CEFPODOXIME
     Indication: Product used for unknown indication
     Dosage: 200 MILLIGRAM, BID (1-0-1-0)
     Route: 048
  2. METRONIDAZOLE [Suspect]
     Active Substance: METRONIDAZOLE
     Indication: Product used for unknown indication
     Dosage: 400 MILLIGRAM, BID (1-0-1-0)
     Route: 048

REACTIONS (3)
  - Nausea [Unknown]
  - Abdominal pain lower [Unknown]
  - Polyuria [Unknown]
